FAERS Safety Report 8054651-6 (Version None)
Quarter: 2012Q1

REPORT INFORMATION
  Report Type: 
  Country: None (occurrence: None)
  Receive Date: 20120119
  Receipt Date: 20120112
  Transmission Date: 20120608
  Serious: No
  Sender: FDA-Public Use
  Company Number: US-PFIZER INC-2012008088

PATIENT
  Sex: Female

DRUGS (2)
  1. DILANTIN [Suspect]
     Dosage: 300MG/DAY
  2. DILANTIN [Suspect]
     Dosage: 600 MG/DAY

REACTIONS (3)
  - SLUGGISHNESS [None]
  - DRUG EFFECT DECREASED [None]
  - FATIGUE [None]
